FAERS Safety Report 24095882 (Version 1)
Quarter: 2024Q3

REPORT INFORMATION
  Report Type: Report from Study
  Country: CN (occurrence: CN)
  Receive Date: 20240716
  Receipt Date: 20240716
  Transmission Date: 20241016
  Serious: Yes (Other)
  Sender: ROCHE
  Company Number: CN-ROCHE-10000009456

PATIENT

DRUGS (3)
  1. BEVACIZUMAB [Suspect]
     Active Substance: BEVACIZUMAB
     Indication: Breast cancer metastatic
     Dosage: ADMINISTERED ON THE 1ST DAY OF EACH CYCLE
     Route: 065
  2. ERIBULIN [Suspect]
     Active Substance: ERIBULIN
     Indication: Breast cancer metastatic
     Dosage: ON THE 1ST AND 8TH DAY OF EACH CYCLE
     Route: 042
  3. CATEQUENTINIB [Suspect]
     Active Substance: CATEQUENTINIB
     Indication: Breast cancer metastatic
     Dosage: FOR 14 CONSECUTIVE DAYS FOLLOWED BY A 7-DAY BREAK
     Route: 042

REACTIONS (14)
  - Neutropenia [Unknown]
  - Thrombocytopenia [Unknown]
  - Anaemia [Unknown]
  - Fatigue [Unknown]
  - Nausea [Unknown]
  - Diarrhoea [Unknown]
  - Constipation [Unknown]
  - Stomatitis [Unknown]
  - Alopecia [Unknown]
  - Neuropathy peripheral [Unknown]
  - Transaminases increased [Unknown]
  - Proteinuria [Unknown]
  - Hypertension [Unknown]
  - Arthralgia [Unknown]
